FAERS Safety Report 20600276 (Version 3)
Quarter: 2022Q2

REPORT INFORMATION
  Report Type: Report from Study
  Country: US (occurrence: US)
  Receive Date: 20220316
  Receipt Date: 20220519
  Transmission Date: 20220721
  Serious: Yes (Hospitalization)
  Sender: FDA-Public Use
  Company Number: US-EXELIXIS-XL18422049904

PATIENT
  Age: 85 Year
  Sex: Male
  Weight: 68 kg

DRUGS (2)
  1. NIVOLUMAB [Suspect]
     Active Substance: NIVOLUMAB
     Indication: Carcinoid tumour
     Dosage: 240 MILLIGRAM, Q2WK
     Route: 042
     Dates: start: 20220223
  2. CABOZANTINIB [Suspect]
     Active Substance: CABOZANTINIB
     Indication: Carcinoid tumour
     Dosage: 40 MILLIGRAM, QD
     Route: 048
     Dates: start: 20220223, end: 20220307

REACTIONS (5)
  - Confusional state [Not Recovered/Not Resolved]
  - Agitation [Recovered/Resolved]
  - Vomiting [Recovered/Resolved]
  - Abdominal pain [Not Recovered/Not Resolved]
  - Diarrhoea [Not Recovered/Not Resolved]

NARRATIVE: CASE EVENT DATE: 20220308
